FAERS Safety Report 7443418-5 (Version None)
Quarter: 2011Q2

REPORT INFORMATION
  Report Type: 
  Country: None (occurrence: None)
  Receive Date: 20110428
  Receipt Date: 20110425
  Transmission Date: 20111010
  Serious: Yes (Death, Other)
  Sender: FDA-Public Use
  Company Number: MA-PFIZER INC-2011069482

PATIENT
  Age: 67 Year
  Sex: Male

DRUGS (1)
  1. SUTENT [Suspect]
     Indication: GASTROINTESTINAL STROMAL TUMOUR
     Dosage: 50 MG, 1X/DAY
     Route: 048
     Dates: start: 20090605, end: 20110325

REACTIONS (13)
  - ANGIOPATHY [None]
  - ASTHENIA [None]
  - HYPOTHYROIDISM [None]
  - ANAEMIA [None]
  - HAEMOLYSIS [None]
  - PALMAR-PLANTAR ERYTHRODYSAESTHESIA SYNDROME [None]
  - SLEEP DISORDER [None]
  - HYPOSIDERAEMIA [None]
  - INTESTINAL FUNCTIONAL DISORDER [None]
  - HAIR COLOUR CHANGES [None]
  - RENAL IMPAIRMENT [None]
  - HYPERTENSION [None]
  - SKIN DISCOLOURATION [None]
